FAERS Safety Report 5400912-6 (Version None)
Quarter: 2007Q3

REPORT INFORMATION
  Report Type: 
  Country: None (occurrence: None)
  Receive Date: 20070730
  Receipt Date: 20060828
  Transmission Date: 20080115
  Serious: No
  Sender: FDA-Public Use
  Company Number: A0616306A

PATIENT
  Age: 2 Month
  Sex: Female
  Weight: 4.1 kg

DRUGS (2)
  1. ZANTAC 150 [Suspect]
     Dosage: .7ML TWICE PER DAY
     Route: 048
  2. MYLANTA [Concomitant]
     Dosage: 1ML UNKNOWN
     Route: 048

REACTIONS (2)
  - RETCHING [None]
  - VOMITING [None]
